FAERS Safety Report 10206069 (Version 2)
Quarter: 2014Q2

REPORT INFORMATION
  Report Type: Spontaneous
  Country: US (occurrence: US)
  Receive Date: 20140530
  Receipt Date: 20140617
  Transmission Date: 20141212
  Serious: No
  Sender: FDA-Public Use
  Company Number: US-PFIZER INC-2014149134

PATIENT
  Age: 44 Year
  Sex: Male
  Weight: 76.19 kg

DRUGS (1)
  1. CHANTIX [Suspect]
     Indication: SMOKING CESSATION THERAPY
     Dosage: UNK
     Dates: start: 2003

REACTIONS (2)
  - Malaise [Unknown]
  - Abnormal dreams [Unknown]
